FAERS Safety Report 23448335 (Version 1)
Quarter: 2024Q1

REPORT INFORMATION
  Report Type: Report from Study
  Country: CH (occurrence: CH)
  Receive Date: 20240127
  Receipt Date: 20240127
  Transmission Date: 20240410
  Serious: Yes (Hospitalization)
  Sender: FDA-Public Use
  Company Number: CH-ABBVIE-5607446

PATIENT
  Sex: Female

DRUGS (4)
  1. CARBIDOPA\LEVODOPA [Suspect]
     Active Substance: CARBIDOPA\LEVODOPA
     Indication: Parkinson^s disease
     Dosage: 1 CARTRIDGE
     Route: 050
     Dates: start: 202106
  2. CARBIDOPA\LEVODOPA [Suspect]
     Active Substance: CARBIDOPA\LEVODOPA
     Dosage: 1 CARTRIDGE?LAST ADMIN DATE -2021
     Route: 050
     Dates: start: 20210531
  3. CARBIDOPA\LEVODOPA [Suspect]
     Active Substance: CARBIDOPA\LEVODOPA
     Dosage: MD: 3.0ML/, CRD: 3.0ML/H, ED: 1.30ML, CRN: 2.0ML/H?24H THERAPY
     Route: 050
     Dates: start: 20230223, end: 20240123
  4. CARBIDOPA\LEVODOPA [Suspect]
     Active Substance: CARBIDOPA\LEVODOPA
     Dosage: MD: 3.0ML/, CRD: 2.4ML/H, ED: 1.50ML, CRN: 1.4ML/H?24H THERAPY
     Route: 050
     Dates: start: 20221031, end: 20230223

REACTIONS (1)
  - General physical health deterioration [Not Recovered/Not Resolved]
